FAERS Safety Report 24270157 (Version 2)
Quarter: 2024Q3

REPORT INFORMATION
  Report Type: Spontaneous
  Country: US (occurrence: US)
  Receive Date: 20240830
  Receipt Date: 20240909
  Transmission Date: 20241017
  Serious: Yes (Hospitalization, Other)
  Sender: OTSUKA
  Company Number: US-OTSUKA-2024_023602

PATIENT
  Sex: Female

DRUGS (1)
  1. REXULTI [Suspect]
     Active Substance: BREXPIPRAZOLE
     Indication: Product used for unknown indication
     Dosage: 3 MG, QD
     Route: 065

REACTIONS (3)
  - Wound dehiscence [Not Recovered/Not Resolved]
  - Lip squamous cell carcinoma [Unknown]
  - Product dose omission issue [Unknown]
